FAERS Safety Report 18253587 (Version 1)
Quarter: 2020Q3

REPORT INFORMATION
  Report Type: Spontaneous
  Country: JP (occurrence: JP)
  Receive Date: 20200910
  Receipt Date: 20200910
  Transmission Date: 20201103
  Serious: Yes (Other)
  Sender: FDA-Public Use
  Company Number: JP-009507513-2009JPN000494J

PATIENT
  Age: 54 Year
  Sex: Female

DRUGS (1)
  1. KEYTRUDA [Suspect]
     Active Substance: PEMBROLIZUMAB
     Indication: ENDOMETRIAL STROMAL SARCOMA
     Dosage: UNK
     Route: 041

REACTIONS (3)
  - Hydronephrosis [Unknown]
  - Diarrhoea [Unknown]
  - Depression [Unknown]
